FAERS Safety Report 15857176 (Version 1)
Quarter: 2019Q1

REPORT INFORMATION
  Report Type: Spontaneous
  Country: GB (occurrence: GB)
  Receive Date: 20190123
  Receipt Date: 20190123
  Transmission Date: 20190417
  Serious: Yes (Disabling, Other)
  Sender: FDA-Public Use
  Company Number: GB-SAKK-2019SA015922AA

PATIENT
  Age: 74 Year
  Sex: Male
  Weight: 89 kg

DRUGS (6)
  1. ACETYLSALICYLIC ACID [Concomitant]
     Active Substance: ASPIRIN
  2. FOLIC ACID. [Concomitant]
     Active Substance: FOLIC ACID
  3. RAMIPRIL. [Concomitant]
     Active Substance: RAMIPRIL
  4. PREDNISOLONE. [Concomitant]
     Active Substance: PREDNISOLONE
  5. OMEPRAZOLE. [Concomitant]
     Active Substance: OMEPRAZOLE
  6. PRALUENT [Suspect]
     Active Substance: ALIROCUMAB
     Indication: BLOOD CHOLESTEROL INCREASED
     Dosage: 150 MG
     Route: 051
     Dates: start: 20181017, end: 20181214

REACTIONS (5)
  - Constipation [Recovering/Resolving]
  - Nausea [Recovering/Resolving]
  - Petechiae [Recovering/Resolving]
  - Pain [Recovering/Resolving]
  - Blood pressure fluctuation [Recovering/Resolving]

NARRATIVE: CASE EVENT DATE: 20181107
